FAERS Safety Report 8830430 (Version 6)
Quarter: 2014Q3

REPORT INFORMATION
  Report Type: Spontaneous
  Country: US (occurrence: US)
  Receive Date: 20121009
  Receipt Date: 20140818
  Transmission Date: 20150326
  Serious: Yes (Hospitalization, Other)
  Sender: FDA-Public Use
  Company Number: US-009507513-1210USA003277

PATIENT
  Sex: Female
  Weight: 72.56 kg

DRUGS (2)
  1. ASPIRIN. [Concomitant]
     Active Substance: ASPIRIN
     Indication: ROUTINE HEALTH MAINTENANCE
     Dosage: 81 MG, QD
     Route: 048
     Dates: start: 2006
  2. NUVARING [Suspect]
     Active Substance: ETHINYL ESTRADIOL\ETONOGESTREL
     Indication: CONTRACEPTION
     Dosage: UNK
     Route: 067
     Dates: start: 20071031, end: 201012

REACTIONS (11)
  - Deep vein thrombosis [Recovered/Resolved]
  - Cholelithiasis [Unknown]
  - Hypertensive crisis [Unknown]
  - Thyroidectomy [Unknown]
  - Leiomyoma [Unknown]
  - Menstruation irregular [Unknown]
  - Renal failure chronic [Unknown]
  - Goitre [Unknown]
  - Thyroid cancer [Unknown]
  - Peripheral swelling [Unknown]
  - Thyroid adenoma [Unknown]

NARRATIVE: CASE EVENT DATE: 2007
